FAERS Safety Report 10050840 (Version 1)
Quarter: 2014Q2

REPORT INFORMATION
  Report Type: Spontaneous
  Country: US (occurrence: US)
  Receive Date: 20140401
  Receipt Date: 20140401
  Transmission Date: 20141212
  Serious: No
  Sender: FDA-Public Use
  Company Number: US-ASTRAZENECA-2014SE06986

PATIENT
  Sex: Female

DRUGS (16)
  1. NEXIUM [Suspect]
     Route: 048
     Dates: start: 20130430
  2. TOPROL XL [Suspect]
     Route: 048
     Dates: start: 20130930
  3. CRESTOR [Suspect]
     Route: 048
  4. LINCOCIN [Suspect]
     Route: 065
  5. ALBUTEROL [Concomitant]
  6. AMLODIPINE [Concomitant]
  7. INSULIN [Concomitant]
  8. BENICAR [Concomitant]
  9. CARAFATE [Concomitant]
  10. HUMALOG [Concomitant]
  11. NORVASC [Concomitant]
  12. PREMARIN [Concomitant]
  13. REGLAN [Concomitant]
  14. TUMS [Concomitant]
  15. VITAMIN B12 [Concomitant]
  16. XANAX [Concomitant]

REACTIONS (4)
  - Myalgia [Unknown]
  - Renal tubular disorder [Unknown]
  - Hepatic function abnormal [Unknown]
  - Off label use [Unknown]
